FAERS Safety Report 17518598 (Version 1)
Quarter: 2020Q1

REPORT INFORMATION
  Report Type: Spontaneous
  Country: US (occurrence: US)
  Receive Date: 20200310
  Receipt Date: 20200310
  Transmission Date: 20200409
  Serious: No
  Sender: FDA-Public Use
  Company Number: US-BRISTOL-MYERS SQUIBB COMPANY-BMS-2020-018925

PATIENT
  Sex: Male
  Weight: 61.2 kg

DRUGS (1)
  1. ELIQUIS [Suspect]
     Active Substance: APIXABAN
     Indication: THROMBOSIS
     Dosage: 5 MILLIGRAM, BID (CURRENTLY 2 TABLETS IN THE MORNING AND 2 TABLETS AT NIGHT FOR THE FIRST 7 DAYS, TH
     Route: 048
     Dates: start: 202002

REACTIONS (3)
  - Chest discomfort [Unknown]
  - Cough [Unknown]
  - Dizziness [Unknown]
